FAERS Safety Report 18004899 (Version 1)
Quarter: 2020Q3

REPORT INFORMATION
  Report Type: Spontaneous
  Country: US (occurrence: US)
  Receive Date: 20200709
  Receipt Date: 20200709
  Transmission Date: 20201103
  Serious: No
  Sender: FDA-Public Use
  Company Number: None

PATIENT
  Age: 82 Year
  Sex: Female
  Weight: 79.6 kg

DRUGS (10)
  1. METHYLPREDNISOLONE 20 MG IV Q6H [Concomitant]
     Dates: start: 20200702
  2. FAMOTIDINE 20 MG IV Q12H [Concomitant]
     Dates: start: 20200702, end: 20200706
  3. REMDESIVIR. [Suspect]
     Active Substance: REMDESIVIR
     Indication: COVID-19 PNEUMONIA
     Route: 042
  4. CEFTRIAXONE 1 GRAM IV Q24H [Concomitant]
     Dates: start: 20200702, end: 20200705
  5. PROPOFOL 20 MCG/KG/MIN [Concomitant]
     Dates: start: 20200702
  6. AZITHROMYCIN 500 MG PO DAILY [Concomitant]
     Dates: start: 20200702, end: 20200705
  7. NOREPINEPHRINE 4 MG/250 ML TITRATED [Concomitant]
     Dates: start: 20200702, end: 20200706
  8. AMIODARONE 450 MG/250 ML TITRATED [Concomitant]
     Dates: start: 20200704, end: 20200705
  9. FENTANYL 50 MCG/HR [Concomitant]
     Dates: start: 20200702
  10. HEPARIN 1200 UNIT/HR [Concomitant]
     Dates: start: 20200703

REACTIONS (3)
  - Atrial fibrillation [None]
  - Acute kidney injury [None]
  - Creatinine renal clearance decreased [None]

NARRATIVE: CASE EVENT DATE: 20200703
